FAERS Safety Report 24431045 (Version 1)
Quarter: 2024Q4

REPORT INFORMATION
  Report Type: Spontaneous
  Country: US (occurrence: US)
  Receive Date: 20241014
  Receipt Date: 20241014
  Transmission Date: 20250114
  Serious: Yes (Life-Threatening, Hospitalization, Other)
  Sender: HIKMA
  Company Number: US-HIKMA PHARMACEUTICALS USA INC.-US-H14001-24-09320

PATIENT
  Age: 31 Year
  Sex: Female

DRUGS (1)
  1. HEPARIN [Suspect]
     Active Substance: HEPARIN SODIUM
     Indication: Jugular vein thrombosis
     Dosage: UNK
     Route: 042

REACTIONS (3)
  - Retroperitoneal haematoma [Unknown]
  - Pulseless electrical activity [Recovered/Resolved]
  - Cardiac arrest [Recovered/Resolved]
